FAERS Safety Report 20137637 (Version 1)
Quarter: 2021Q4

REPORT INFORMATION
  Report Type: Spontaneous
  Country: None (occurrence: PE)
  Receive Date: 20211201
  Receipt Date: 20211201
  Transmission Date: 20220304
  Serious: No
  Sender: FDA-Public Use
  Company Number: PE-Oxford Pharmaceuticals, LLC-2122568

PATIENT
  Age: 44 Year
  Sex: Female
  Weight: 81 kg

DRUGS (1)
  1. HYDROCHLOROTHIAZIDE [Suspect]
     Active Substance: HYDROCHLOROTHIAZIDE
     Indication: Diabetes insipidus

REACTIONS (3)
  - Urinary tract infection [Unknown]
  - Blood glucose increased [Unknown]
  - Drug ineffective [Unknown]
